FAERS Safety Report 24139070 (Version 2)
Quarter: 2024Q3

REPORT INFORMATION
  Report Type: Report from Study
  Country: US (occurrence: US)
  Receive Date: 20240726
  Receipt Date: 20240821
  Transmission Date: 20241016
  Serious: Yes (Hospitalization)
  Sender: ACADIA PHARMACEUTICALS
  Company Number: US-ACADIA PHARMACEUTICALS INC.-ACA-2024-PIM-003218

PATIENT
  Age: 56 Year
  Sex: Male

DRUGS (21)
  1. NUPLAZID [Suspect]
     Active Substance: PIMAVANSERIN TARTRATE
     Indication: Parkinson^s disease
     Dosage: 10 MILLIGRAM, QD
     Route: 048
     Dates: start: 20240111
  2. NOVOLOG [Concomitant]
     Active Substance: INSULIN ASPART
  3. OZEMPIC [Concomitant]
     Active Substance: SEMAGLUTIDE
  4. FLUDROCORTISONE [Concomitant]
     Active Substance: FLUDROCORTISONE
  5. LANTUS SOLOSTAR [Concomitant]
     Active Substance: INSULIN GLARGINE
  6. MIRTAZAPINE [Concomitant]
     Active Substance: MIRTAZAPINE
  7. PRAZOSIN [Concomitant]
     Active Substance: PRAZOSIN
  8. BUSPAR [Concomitant]
     Active Substance: BUSPIRONE HYDROCHLORIDE
  9. CARAFATE [Concomitant]
     Active Substance: SUCRALFATE
  10. PREGABALIN [Concomitant]
     Active Substance: PREGABALIN
  11. DULOXETINE [Concomitant]
     Active Substance: DULOXETINE
  12. FAMOTIDINE [Concomitant]
     Active Substance: FAMOTIDINE
  13. XARELTO [Concomitant]
     Active Substance: RIVAROXABAN
  14. HYDROXYZINE [Concomitant]
     Active Substance: HYDROXYZINE HYDROCHLORIDE
  15. ALBUTEROL [Concomitant]
     Active Substance: ALBUTEROL
  16. ONDANSETRON [Concomitant]
     Active Substance: ONDANSETRON
  17. METOPROLOL TARTRATE [Concomitant]
     Active Substance: METOPROLOL TARTRATE
  18. METFORMIN [Concomitant]
     Active Substance: METFORMIN HYDROCHLORIDE
  19. DIGOXIN [Concomitant]
     Active Substance: DIGOXIN
  20. AUVELITY [Concomitant]
     Active Substance: BUPROPION HYDROCHLORIDE\DEXTROMETHORPHAN HYDROBROMIDE
  21. LISINOPRIL [Concomitant]
     Active Substance: LISINOPRIL

REACTIONS (1)
  - Orthostatic hypotension [Recovered/Resolved]

NARRATIVE: CASE EVENT DATE: 20240401
